FAERS Safety Report 16454303 (Version 2)
Quarter: 2019Q2

REPORT INFORMATION
  Report Type: Spontaneous
  Country: TN (occurrence: TN)
  Receive Date: 20190619
  Receipt Date: 20190625
  Transmission Date: 20190711
  Serious: Yes (Hospitalization, Other)
  Sender: FDA-Public Use
  Company Number: TN-PFIZER INC-2019261249

PATIENT
  Age: 75 Year
  Sex: Male

DRUGS (2)
  1. GEMCITABINE HYDROCHLORIDE. [Suspect]
     Active Substance: GEMCITABINE HYDROCHLORIDE
     Indication: NON-SMALL CELL LUNG CANCER STAGE IV
     Dosage: 1000 MG/M2, CYCLIC (ON DAYS 1, 8 AND 15, REPEATED EVERY 28 DAYS)
     Route: 042
     Dates: start: 200309
  2. CISPLATIN. [Suspect]
     Active Substance: CISPLATIN
     Indication: NON-SMALL CELL LUNG CANCER STAGE IV
     Dosage: 75 MG/M2, CYCLIC (ON DAY 15, REPEATED EVERY 28 DAYS)
     Route: 042
     Dates: start: 200309

REACTIONS (1)
  - Dermatitis bullous [Recovered/Resolved]
